FAERS Safety Report 11807055 (Version 1)
Quarter: 2015Q4

REPORT INFORMATION
  Report Type: Spontaneous
  Country: US (occurrence: US)
  Receive Date: 20151207
  Receipt Date: 20151207
  Transmission Date: 20160305
  Serious: No
  Sender: FDA-Public Use
  Company Number: US-ENDO PHARMACEUTICALS INC.-2015-001711

PATIENT
  Age: 50 Year
  Sex: Male
  Weight: 111.23 kg

DRUGS (2)
  1. TESTIM [Suspect]
     Active Substance: TESTOSTERONE
     Indication: BLOOD TESTOSTERONE DECREASED
     Route: 065
     Dates: start: 2015, end: 20150625
  2. TESTIM [Suspect]
     Active Substance: TESTOSTERONE
     Route: 065
     Dates: start: 20150626

REACTIONS (2)
  - Inappropriate schedule of drug administration [Unknown]
  - Blood testosterone decreased [Unknown]

NARRATIVE: CASE EVENT DATE: 201506
